FAERS Safety Report 25287260 (Version 1)
Quarter: 2025Q2

REPORT INFORMATION
  Report Type: Spontaneous
  Country: GB (occurrence: GB)
  Receive Date: 20250509
  Receipt Date: 20250509
  Transmission Date: 20250716
  Serious: Yes (Life-Threatening, Hospitalization, Disabling, Other)
  Sender: MSN LABORATORIES PRIVATE LIMITED
  Company Number: None

PATIENT

DRUGS (1)
  1. PREGABALIN [Suspect]
     Active Substance: PREGABALIN
     Indication: Product used for unknown indication
     Route: 065

REACTIONS (14)
  - Cerebrovascular accident [Unknown]
  - Blindness [Not Recovered/Not Resolved]
  - Vth nerve injury [Unknown]
  - Hypoacusis [Unknown]
  - Drug ineffective [Unknown]
  - Weight decreased [Unknown]
  - Gait disturbance [Unknown]
  - Amnesia [Unknown]
  - Dysphagia [Unknown]
  - Fatigue [Unknown]
  - Feeling abnormal [Unknown]
  - Pain [Unknown]
  - Somnolence [Unknown]
  - Tremor [Unknown]
